FAERS Safety Report 8281642-2 (Version None)
Quarter: 2012Q2

REPORT INFORMATION
  Report Type: 
  Country: None (occurrence: None)
  Receive Date: 20120413
  Receipt Date: 20120405
  Transmission Date: 20120825
  Serious: Yes (Hospitalization)
  Sender: FDA-Public Use
  Company Number: JP-PFIZER INC-2012071203

PATIENT
  Age: 79 Year
  Sex: Female

DRUGS (4)
  1. AMIODARONE HYDROCHLORIDE [Suspect]
     Indication: PRODUCT USED FOR UNKNOWN INDICATION
     Dosage: 200 MG, DAILY
     Route: 048
  2. PLAVIX [Suspect]
     Indication: CEREBRAL INFARCTION
     Dosage: 50 MG, DAILY
     Route: 048
     Dates: start: 20120201, end: 20120101
  3. PRADAXA [Concomitant]
     Indication: ATRIAL FIBRILLATION
     Dosage: UNK
  4. PLAVIX [Suspect]
     Dosage: 75 MG, DAILY
     Route: 048
     Dates: start: 20120101

REACTIONS (1)
  - LEUKOPENIA [None]
